FAERS Safety Report 6641022-X (Version None)
Quarter: 2010Q1

REPORT INFORMATION
  Report Type: 
  Country: None (occurrence: None)
  Receive Date: 20100318
  Receipt Date: 20100310
  Transmission Date: 20100710
  Serious: Yes (Hospitalization)
  Sender: FDA-Public Use
  Company Number: B0640470A

PATIENT
  Sex: Female
  Weight: 68 kg

DRUGS (6)
  1. LAPATINIB [Suspect]
     Indication: BREAST CANCER
     Dosage: 1000MG PER DAY
     Route: 048
     Dates: start: 20090630
  2. TRASTUZUMAB [Suspect]
     Indication: BREAST CANCER
     Route: 042
     Dates: start: 20090630
  3. PACLITAXEL [Suspect]
     Indication: BREAST CANCER
     Dosage: 80MGM2 WEEKLY
     Route: 042
     Dates: start: 20090630
  4. GLYCORAN [Concomitant]
     Dosage: 40MG PER DAY
     Route: 048
     Dates: start: 20090301
  5. METFORMIN HYDROCHLORIDE [Concomitant]
     Dosage: 850MG TWICE PER DAY
     Route: 048
     Dates: start: 20090929
  6. TAMOXIFEN CITRATE [Concomitant]
     Dosage: 20MG PER DAY
     Route: 048
     Dates: start: 20091015

REACTIONS (5)
  - ATAXIA [None]
  - CEREBELLAR ATAXIA [None]
  - CEREBELLAR SYNDROME [None]
  - MEMORY IMPAIRMENT [None]
  - POSITIVE ROMBERGISM [None]
